FAERS Safety Report 4343337-7 (Version None)
Quarter: 2004Q1

REPORT INFORMATION
  Report Type: 
  Country: None (occurrence: None)
  Receive Date: 20040325
  Receipt Date: 20040220
  Transmission Date: 20041129
  Serious: No
  Sender: FDA-Public Use
  Company Number: USA040259839

PATIENT
  Age: 59 Year
  Sex: Female
  Weight: 55 kg

DRUGS (6)
  1. FORTEO [Suspect]
     Indication: OSTEOPENIA
     Dosage: 20 UG/ 1 DAY
     Dates: start: 20040220
  2. CALCITRATE (CALCIUM) [Concomitant]
  3. POTASSIUM CITRATE [Concomitant]
  4. ZOCOR [Concomitant]
  5. OGEN [Concomitant]
  6. ALDACTONE [Concomitant]

REACTIONS (2)
  - DIZZINESS [None]
  - INJECTION SITE BURNING [None]
